FAERS Safety Report 10419845 (Version 1)
Quarter: 2014Q3

REPORT INFORMATION
  Report Type: Other
  Country: FR (occurrence: FR)
  Receive Date: 20140829
  Receipt Date: 20140829
  Transmission Date: 20150326
  Serious: Yes (Hospitalization)
  Sender: FDA-Public Use
  Company Number: FR-MYLAN-2014M1002025

PATIENT

DRUGS (3)
  1. FLIXOTIDE [Concomitant]
     Active Substance: FLUTICASONE PROPIONATE
     Dosage: UNK
     Dates: start: 20140123
  2. CLARITHROMYCINE MYLAN [Suspect]
     Active Substance: CLARITHROMYCIN
     Indication: NASOPHARYNGITIS
     Dosage: 2 DF, UNK
     Route: 048
     Dates: start: 20140123, end: 20140126
  3. PREDNISOLONE ARROW [Concomitant]
     Dosage: UNK
     Dates: start: 20140123

REACTIONS (6)
  - Pruritus [Recovered/Resolved]
  - Face oedema [Recovered/Resolved]
  - Rash erythematous [Recovered/Resolved]
  - Malaise [None]
  - Hyperhidrosis [None]
  - Loss of consciousness [None]

NARRATIVE: CASE EVENT DATE: 20140126
